FAERS Safety Report 23703586 (Version 1)
Quarter: 2024Q2

REPORT INFORMATION
  Report Type: Spontaneous
  Country: US (occurrence: US)
  Receive Date: 20240403
  Receipt Date: 20240403
  Transmission Date: 20240716
  Serious: No
  Sender: FDA-Public Use
  Company Number: US-KARYOPHARM-2023KPT002154

PATIENT

DRUGS (10)
  1. XPOVIO [Suspect]
     Active Substance: SELINEXOR
     Indication: Plasma cell myeloma
     Dosage: 60 MG, TAKE 1 TABLET BY MOUTH EVERY 7 DAYS ON DAYS 1,8, 15 OF A 28 DAY CYCLE
     Route: 048
     Dates: start: 20231005, end: 20231102
  2. XPOVIO [Suspect]
     Active Substance: SELINEXOR
     Dosage: 60 MG, 1X/DAY 1,8, 15
     Route: 048
     Dates: start: 20231109
  3. XPOVIO [Suspect]
     Active Substance: SELINEXOR
     Dosage: 40 MG, WEEKLY
     Route: 048
  4. ONDANSETRON [Concomitant]
     Active Substance: ONDANSETRON
  5. KYPROLIS [Concomitant]
     Active Substance: CARFILZOMIB
  6. GABAPENTIN [Concomitant]
     Active Substance: GABAPENTIN
  7. OLMESARTAN MEDOXOMIL [Concomitant]
     Active Substance: OLMESARTAN MEDOXOMIL
  8. XARELTO [Concomitant]
     Active Substance: RIVAROXABAN
  9. ACYCLOVIR [Concomitant]
     Active Substance: ACYCLOVIR
  10. ZOFRAN [Concomitant]
     Active Substance: ONDANSETRON HYDROCHLORIDE

REACTIONS (2)
  - Platelet count decreased [Not Recovered/Not Resolved]
  - Nausea [Not Recovered/Not Resolved]

NARRATIVE: CASE EVENT DATE: 20230101
